FAERS Safety Report 16586793 (Version 1)
Quarter: 2019Q3

REPORT INFORMATION
  Report Type: Spontaneous
  Country: FR (occurrence: FR)
  Receive Date: 20190717
  Receipt Date: 20190717
  Transmission Date: 20191004
  Serious: Yes (Life-Threatening, Hospitalization)
  Sender: FDA-Public Use
  Company Number: FR-TEVA-2019-FR-1077343

PATIENT
  Age: 82 Year
  Sex: Female
  Weight: 73 kg

DRUGS (17)
  1. KARDEGIC [Concomitant]
     Active Substance: ASPIRIN DL-LYSINE
     Indication: PLATELET AGGREGATION INHIBITION
     Dosage: 75MG PER DAY
     Route: 048
  2. NEFOPAM (CHLORHYDRATE DE) [Concomitant]
     Active Substance: NEFOPAM HYDROCHLORIDE
     Indication: PAIN
     Dosage: 1 TO 3 / DAY IF NEEDED
     Route: 048
  3. ATENOLOL. [Concomitant]
     Active Substance: ATENOLOL
     Indication: HYPERTENSION
     Dosage: 50MG PER DAY
     Route: 048
  4. ZOPICLONE [Concomitant]
     Active Substance: ZOPICLONE
     Indication: INSOMNIA
     Dosage: 7.5MG PER DAY
     Route: 048
  5. HUMALOG [Concomitant]
     Active Substance: INSULIN LISPRO
     Indication: TYPE 2 DIABETES MELLITUS
     Dosage: 2 TO 10 IU / D
     Route: 058
     Dates: start: 20190603
  6. FUROSEMIDE. [Suspect]
     Active Substance: FUROSEMIDE
     Indication: HYPERTENSION
     Dosage: 40MG PER DAY
     Route: 048
  7. ROSUVASTATINE [Concomitant]
     Active Substance: ROSUVASTATIN
     Indication: DYSLIPIDAEMIA
     Dosage: 5MG PER DAY
     Route: 048
  8. LANSOPRAZOLE. [Concomitant]
     Active Substance: LANSOPRAZOLE
     Indication: GASTROOESOPHAGEAL REFLUX DISEASE
     Dosage: 30MG PER DAY
     Route: 048
  9. PARACETAMOL [Concomitant]
     Active Substance: ACETAMINOPHEN
     Indication: PAIN
     Dosage: 3GM PER DAY
     Route: 048
  10. LEVOTHYROX 100 MICROGRAMMES, COMPRIM? S?CABLE [Concomitant]
     Active Substance: LEVOTHYROXINE SODIUM
     Indication: THYROID DISORDER
     Dosage: 100MICROGRAM PER DAY
     Route: 048
  11. DIFFU K [Suspect]
     Active Substance: POTASSIUM CHLORIDE
     Indication: MINERAL SUPPLEMENTATION
     Route: 048
     Dates: end: 20190613
  12. METFORMINE [Concomitant]
     Active Substance: METFORMIN HYDROCHLORIDE
     Indication: TYPE 2 DIABETES MELLITUS
     Dosage: 2550MG PER DAY
     Route: 048
     Dates: start: 20190603, end: 20190613
  13. MOLSIDOMINE [Concomitant]
     Active Substance: MOLSIDOMINE
     Indication: ANGINA PECTORIS
     Dosage: 8MG PER DAY
     Route: 048
  14. NATISPRAY 0,15 MG/DOSE, SOLUTION POUR PULV?RISATION BUCCALE [Concomitant]
     Indication: ANGINA PECTORIS
     Dosage: 1 TO 3 / DAY IF NEEDED
     Route: 060
  15. MOVICOL [Concomitant]
     Active Substance: POLYETHYLENE GLYCOL 3350\POTASSIUM CHLORIDE\SODIUM BICARBONATE\SODIUM CHLORIDE
     Indication: CONSTIPATION
     Dosage: 2DOSAGE FORM PER DAY
     Route: 048
  16. ENALAPRIL (MALEATE D^) [Suspect]
     Active Substance: ENALAPRIL MALEATE
     Indication: HYPERTENSION
     Dosage: 20MG PER DAY
     Route: 048
     Dates: end: 20190613
  17. CEFTRIAXONE BASE [Concomitant]
     Active Substance: CEFTRIAXONE
     Indication: INFECTION
     Dosage: 1GRAM PER DAY
     Route: 030

REACTIONS (2)
  - Acute kidney injury [Recovered/Resolved]
  - Hyperkalaemia [Recovered/Resolved]

NARRATIVE: CASE EVENT DATE: 20190613
